FAERS Safety Report 9892215 (Version 1)
Quarter: 2014Q1

REPORT INFORMATION
  Report Type: Report from Study
  Country: JP (occurrence: JP)
  Receive Date: 20140212
  Receipt Date: 20140212
  Transmission Date: 20141002
  Serious: Yes (Hospitalization, Other)
  Sender: FDA-Public Use
  Company Number: JP-TAKEDA-2014TJP001381

PATIENT
  Age: 56 Year
  Sex: Male
  Weight: 63 kg

DRUGS (11)
  1. PIOGLITAZONE [Suspect]
     Indication: TYPE 2 DIABETES MELLITUS
     Dosage: 15 MG,1 DAYS
     Route: 048
     Dates: start: 20090929, end: 20100205
  2. BLOPRESS [Concomitant]
     Dosage: UNK
     Route: 048
  3. HUMALOG [Concomitant]
     Indication: TYPE 2 DIABETES MELLITUS
     Dosage: 31 UT, TID
     Route: 050
     Dates: end: 20090608
  4. HUMALOG [Concomitant]
     Dosage: 20 IU, BID
     Route: 042
     Dates: start: 20090609, end: 20091203
  5. HUMALOG [Concomitant]
     Dosage: 16 IU, BID
     Route: 042
     Dates: start: 20091204, end: 20091224
  6. HUMALOG [Concomitant]
     Dosage: 14 IU, BID
     Route: 042
     Dates: start: 20091225, end: 20100205
  7. HUMALOG MIX 50 [Concomitant]
     Indication: TYPE 2 DIABETES MELLITUS
     Dosage: 11 UT, QD
     Route: 050
     Dates: start: 20090609, end: 20090826
  8. HUMALOG MIX 50 [Concomitant]
     Dosage: 13 UT, QD
     Route: 050
     Dates: start: 20090827, end: 20100205
  9. ZYLORIC [Concomitant]
     Dosage: UNK
     Route: 048
  10. CRESTOR [Concomitant]
     Dosage: UNK
     Route: 048
  11. CHAMPIX [Concomitant]
     Dosage: UNK
     Route: 048

REACTIONS (1)
  - Myocardial infarction [Recovering/Resolving]
